FAERS Safety Report 6048427-9 (Version None)
Quarter: 2009Q1

REPORT INFORMATION
  Report Type: 
  Country: None (occurrence: None)
  Receive Date: 20090123
  Receipt Date: 20090116
  Transmission Date: 20090719
  Serious: Yes (Death, Hospitalization)
  Sender: FDA-Public Use
  Company Number: A0764588A

PATIENT
  Age: 52 Year
  Sex: Male
  Weight: 136.4 kg

DRUGS (2)
  1. AVANDIA [Suspect]
     Route: 048
     Dates: start: 19990101, end: 20051031
  2. ACCUPRIL [Concomitant]

REACTIONS (2)
  - DEATH [None]
  - MYOCARDIAL INFARCTION [None]
